FAERS Safety Report 18991249 (Version 1)
Quarter: 2021Q1

REPORT INFORMATION
  Report Type: Spontaneous
  Country: DE (occurrence: DE)
  Receive Date: 20210310
  Receipt Date: 20210310
  Transmission Date: 20210420
  Serious: Yes (Hospitalization, Other)
  Sender: FDA-Public Use
  Company Number: DE-SUN PHARMACEUTICAL INDUSTRIES LTD-2021R1-284639

PATIENT
  Age: 28 Year
  Sex: Male

DRUGS (1)
  1. CLOZAPINE. [Suspect]
     Active Substance: CLOZAPINE
     Indication: SCHIZOPHRENIA
     Dosage: 8 DEPLETED BLISTERS (10 TABLETS PER BLISTER, 100 MG/TABLET, TOTAL 8 G)
     Route: 048

REACTIONS (16)
  - Septic shock [Unknown]
  - Somnolence [Unknown]
  - Disturbance in attention [Unknown]
  - Coma scale abnormal [Not Recovered/Not Resolved]
  - Lung infiltration [Unknown]
  - Acute kidney injury [Recovering/Resolving]
  - Toxicity to various agents [Unknown]
  - Pneumomediastinum [Recovered/Resolved]
  - Emphysema [Recovered/Resolved]
  - Anticholinergic syndrome [Unknown]
  - Sinus tachycardia [Recovered/Resolved]
  - Sepsis [Unknown]
  - Rhabdomyolysis [Recovering/Resolving]
  - Crush syndrome [Unknown]
  - Atelectasis [Unknown]
  - Hypertension [Recovered/Resolved]
